FAERS Safety Report 11078052 (Version 1)
Quarter: 2015Q2

REPORT INFORMATION
  Report Type: Spontaneous
  Country: US (occurrence: None)
  Receive Date: 20150429
  Receipt Date: 20150429
  Transmission Date: 20150821
  Serious: Yes (Life-Threatening, Other)
  Sender: FDA-Public Use
  Company Number: None

PATIENT
  Age: 18 Year
  Sex: Female
  Weight: 61.24 kg

DRUGS (1)
  1. DOXYCYCLINE. [Suspect]
     Active Substance: DOXYCYCLINE
     Indication: LYME DISEASE
     Dosage: 2 PILLS
     Route: 048

REACTIONS (5)
  - Vomiting [None]
  - Suicidal ideation [None]
  - Feeling abnormal [None]
  - Fear [None]
  - Tremor [None]

NARRATIVE: CASE EVENT DATE: 20150424
